FAERS Safety Report 25802426 (Version 1)
Quarter: 2025Q3

REPORT INFORMATION
  Report Type: Spontaneous
  Country: US (occurrence: US)
  Receive Date: 20250915
  Receipt Date: 20250915
  Transmission Date: 20251021
  Serious: Yes (Other)
  Sender: SANDOZ
  Company Number: US-NOVPHSZ-PHHY2017US129169

PATIENT
  Age: 62 Year
  Sex: Male

DRUGS (10)
  1. LEDIPASVIR\SOFOSBUVIR [Suspect]
     Active Substance: LEDIPASVIR\SOFOSBUVIR
     Indication: Chronic hepatitis C
     Route: 065
  2. LEDIPASVIR\SOFOSBUVIR [Suspect]
     Active Substance: LEDIPASVIR\SOFOSBUVIR
     Indication: Antiviral treatment
  3. MYCOPHENOLATE MOFETIL [Suspect]
     Active Substance: MYCOPHENOLATE MOFETIL
     Indication: Immunosuppressant drug therapy
     Route: 065
  4. PREDNISONE [Suspect]
     Active Substance: PREDNISONE
     Indication: Immunosuppressant drug therapy
     Route: 065
  5. PREDNISONE [Interacting]
     Active Substance: PREDNISONE
     Indication: Renal transplant
     Route: 065
  6. PREDNISONE [Interacting]
     Active Substance: PREDNISONE
     Indication: Immunosuppressant drug therapy
  7. PREDNISONE [Interacting]
     Active Substance: PREDNISONE
     Indication: Immunosuppression
  8. RIBAVIRIN [Interacting]
     Active Substance: RIBAVIRIN
     Indication: Product used for unknown indication
     Route: 065
  9. RIBAVIRIN [Interacting]
     Active Substance: RIBAVIRIN
     Indication: Antiviral treatment
  10. TACROLIMUS [Interacting]
     Active Substance: TACROLIMUS
     Indication: Immunosuppressant drug therapy
     Route: 065

REACTIONS (4)
  - Focal segmental glomerulosclerosis [Recovering/Resolving]
  - Proteinuria [Recovering/Resolving]
  - Drug interaction [Recovering/Resolving]
  - Condition aggravated [Recovering/Resolving]
